FAERS Safety Report 16024703 (Version 2)
Quarter: 2019Q1

REPORT INFORMATION
  Report Type: Spontaneous
  Country: CZ (occurrence: CZ)
  Receive Date: 20190301
  Receipt Date: 20190314
  Transmission Date: 20190418
  Serious: Yes (Death, Other)
  Sender: FDA-Public Use
  Company Number: CZ-TAKEDA-2019TUS011106

PATIENT
  Age: 29 Year
  Sex: Male

DRUGS (1)
  1. ICLUSIG [Suspect]
     Active Substance: PONATINIB
     Indication: CHRONIC MYELOID LEUKAEMIA TRANSFORMATION
     Dosage: UNK
     Route: 048
     Dates: start: 201804

REACTIONS (12)
  - Fatigue [Unknown]
  - Altered state of consciousness [Unknown]
  - Blood count abnormal [Unknown]
  - Headache [Unknown]
  - Abdominal pain [Unknown]
  - Feeling of despair [Unknown]
  - Vomiting [Unknown]
  - Death [Fatal]
  - Pyrexia [Unknown]
  - Splenomegaly [Unknown]
  - Nervousness [Unknown]
  - Fear of death [Unknown]

NARRATIVE: CASE EVENT DATE: 2018
